FAERS Safety Report 4734328-2 (Version None)
Quarter: 2005Q3

REPORT INFORMATION
  Report Type: 
  Country: None (occurrence: None)
  Receive Date: 20050804
  Receipt Date: 20050720
  Transmission Date: 20060218
  Serious: Yes (Death)
  Sender: FDA-Public Use
  Company Number: US-BOEHRINGER INGELHEIM PHARMACEUTICALS, INC.-2005-DE-02841GD

PATIENT
  Age: 71 Year
  Sex: Male

DRUGS (3)
  1. ASPIRIN [Suspect]
     Indication: THROMBOSIS PROPHYLAXIS
  2. DIPYRIDAMOLE [Suspect]
     Indication: THROMBOSIS PROPHYLAXIS
  3. CHEMOTHERAPY [Concomitant]
     Indication: PANCREATIC CARCINOMA METASTATIC

REACTIONS (8)
  - BLOOD FIBRINOGEN DECREASED [None]
  - DEATH [None]
  - DEEP VEIN THROMBOSIS [None]
  - DISEASE RECURRENCE [None]
  - DRUG INEFFECTIVE [None]
  - HEMIPARESIS [None]
  - ISCHAEMIC STROKE [None]
  - PANCREATIC CARCINOMA METASTATIC [None]
